FAERS Safety Report 16140221 (Version 1)
Quarter: 2019Q2

REPORT INFORMATION
  Report Type: Spontaneous
  Country: IT (occurrence: IT)
  Receive Date: 20190401
  Receipt Date: 20190401
  Transmission Date: 20190711
  Serious: Yes (Hospitalization)
  Sender: FDA-Public Use
  Company Number: IT-SA-2018SA194999

PATIENT
  Age: 75 Year
  Sex: Male

DRUGS (6)
  1. TORVAST [Concomitant]
     Active Substance: ATORVASTATIN
  2. EBIXA [Concomitant]
     Active Substance: MEMANTINE HYDROCHLORIDE
  3. METFORAL [Concomitant]
     Active Substance: METFORMIN HYDROCHLORIDE
  4. SERPENS [Concomitant]
  5. PLAVIX [Suspect]
     Active Substance: CLOPIDOGREL BISULFATE
     Indication: ACUTE CORONARY SYNDROME
     Dosage: 1 DF, QD
     Route: 048
     Dates: start: 20020101
  6. MADOPAR [Concomitant]
     Active Substance: BENSERAZIDE HYDROCHLORIDE\LEVODOPA

REACTIONS (2)
  - Syncope [Recovering/Resolving]
  - Medication error [Recovering/Resolving]

NARRATIVE: CASE EVENT DATE: 20180614
